FAERS Safety Report 15777235 (Version 1)
Quarter: 2018Q4

REPORT INFORMATION
  Report Type: Spontaneous
  Country: US (occurrence: US)
  Receive Date: 20181230
  Receipt Date: 20181230
  Transmission Date: 20190205
  Serious: Yes (Disabling)
  Sender: FDA-Public Use
  Company Number: None

PATIENT
  Age: 32 Year
  Sex: Male
  Weight: 45 kg

DRUGS (6)
  1. NUTROPINE [Concomitant]
  2. LEVOTHYROXINE. [Concomitant]
     Active Substance: LEVOTHYROXINE
  3. CLOBAZAM. [Suspect]
     Active Substance: CLOBAZAM
     Indication: EPILEPSY
     Dosage: ?          QUANTITY:1 TABLET(S);?
     Route: 048
     Dates: start: 20181109, end: 20181224
  4. ZONISIMIDE [Concomitant]
  5. PHENOBARBITAL. [Concomitant]
     Active Substance: PHENOBARBITAL
  6. MINOCYCLINE [Concomitant]
     Active Substance: MINOCYCLINE\MINOCYCLINE HYDROCHLORIDE

REACTIONS (5)
  - Product substitution issue [None]
  - Decreased appetite [None]
  - Hallucination [None]
  - Speech disorder [None]
  - Non-24-hour sleep-wake disorder [None]

NARRATIVE: CASE EVENT DATE: 20181220
